FAERS Safety Report 9551517 (Version 1)
Quarter: 2013Q3

REPORT INFORMATION
  Report Type: Spontaneous
  Country: US (occurrence: None)
  Receive Date: 20130724
  Receipt Date: 20130724
  Transmission Date: 20140515
  Serious: Yes (Other)
  Sender: FDA-Public Use
  Company Number: PHEH2012US011122

PATIENT
  Age: 76 Year
  Sex: Female

DRUGS (1)
  1. GLEEVEC [Suspect]
     Indication: SOFT TISSUE CANCER
     Route: 048
     Dates: start: 20120307

REACTIONS (15)
  - Gastroenteritis viral [None]
  - Sinusitis [None]
  - Hypophagia [None]
  - Visual impairment [None]
  - Weight fluctuation [None]
  - Renal disorder [None]
  - Back pain [None]
  - Nausea [None]
  - Hearing impaired [None]
  - Periorbital oedema [None]
  - Dizziness [None]
  - Vertigo [None]
  - Abdominal distension [None]
  - Oedema [None]
  - Nasopharyngitis [None]
